FAERS Safety Report 12378972 (Version 2)
Quarter: 2016Q3

REPORT INFORMATION
  Report Type: Spontaneous
  Country: JP (occurrence: JP)
  Receive Date: 20160517
  Receipt Date: 20160822
  Transmission Date: 20161109
  Serious: Yes (Hospitalization, Disabling, Other)
  Sender: FDA-Public Use
  Company Number: JP-PFIZER INC-2016253689

PATIENT
  Age: 68 Year
  Sex: Male
  Weight: 59 kg

DRUGS (2)
  1. ANAEMETRO 500MG [Suspect]
     Active Substance: METRONIDAZOLE
     Indication: INFLAMMATION
     Dosage: 500 MG, 3X/DAY
     Route: 041
     Dates: start: 20150820, end: 20150901
  2. FLAGYL [Suspect]
     Active Substance: METRONIDAZOLE\METRONIDAZOLE HYDROCHLORIDE
     Indication: INFLAMMATION
     Dosage: 500 MG, 3X/DAY
     Route: 048
     Dates: start: 20150902, end: 20151007

REACTIONS (1)
  - Toxic encephalopathy [Recovered/Resolved]

NARRATIVE: CASE EVENT DATE: 20151005
